FAERS Safety Report 7987541-5 (Version None)
Quarter: 2011Q4

REPORT INFORMATION
  Report Type: 
  Country: None (occurrence: None)
  Receive Date: 20111216
  Receipt Date: 20111214
  Transmission Date: 20120403
  Serious: Yes (Hospitalization, Other)
  Sender: FDA-Public Use
  Company Number: PHHY2011ZA109154

PATIENT
  Sex: Male

DRUGS (2)
  1. ZOLEDRONIC ACID [Suspect]
     Dosage: UNK UKN, UNK
     Route: 042
     Dates: start: 20090101
  2. ZOLEDRONIC ACID [Suspect]
     Dosage: UNK UKN, UNK
     Route: 042
     Dates: start: 20100101

REACTIONS (3)
  - DIVERTICULITIS [None]
  - MALAISE [None]
  - EPILEPSY [None]
